FAERS Safety Report 10410680 (Version 1)
Quarter: 2014Q2

REPORT INFORMATION
  Report Type: Spontaneous
  Country: US (occurrence: None)
  Receive Date: 20140530
  Receipt Date: 20140530
  Transmission Date: 20141212
  Serious: No
  Sender: FDA-Public Use
  Company Number: 227160LEO

PATIENT
  Age: 57 Year
  Sex: Female

DRUGS (4)
  1. PICATO [Suspect]
     Indication: PRECANCEROUS SKIN LESION
     Dosage: 1 IN 1 D
     Route: 061
     Dates: start: 20140411, end: 20140413
  2. PICATO [Suspect]
     Indication: ACTINIC KERATOSIS
     Dosage: 1 IN 1 D
     Route: 061
     Dates: start: 20140411, end: 20140413
  3. LORAZEPAM [Concomitant]
  4. IBUPROFEN [Concomitant]

REACTIONS (5)
  - Application site discomfort [None]
  - Application site erythema [None]
  - Application site vesicles [None]
  - Application site swelling [None]
  - Off label use [None]
